FAERS Safety Report 17921310 (Version 1)
Quarter: 2020Q2

REPORT INFORMATION
  Report Type: Report from Study
  Country: None (occurrence: JP)
  Receive Date: 20200622
  Receipt Date: 20200622
  Transmission Date: 20200714
  Serious: Yes (Death, Other)
  Sender: FDA-Public Use
  Company Number: JP-CLINIGEN GROUP PLC/ CLINIGEN HEALTHCARE LTD-JP-CLGN-20-00262

PATIENT
  Age: 39 Year
  Sex: Female
  Weight: 69.8 kg

DRUGS (18)
  1. SAVENE [Suspect]
     Active Substance: DEXRAZOXANE
     Route: 041
     Dates: start: 20190917, end: 20190917
  2. DAUNOMYCIN [Concomitant]
     Active Substance: DAUNORUBICIN
     Route: 042
     Dates: start: 20190918, end: 20190920
  3. ITRACONAZOLE. [Concomitant]
     Active Substance: ITRACONAZOLE
     Indication: PRODUCT USED FOR UNKNOWN INDICATION
     Route: 048
     Dates: start: 20190913, end: 20190920
  4. CIPROFLOXACIN. [Concomitant]
     Active Substance: CIPROFLOXACIN
     Indication: PRODUCT USED FOR UNKNOWN INDICATION
     Route: 048
     Dates: start: 20190913, end: 20190920
  5. DAUNOMYCIN [Concomitant]
     Active Substance: DAUNORUBICIN
     Indication: ACUTE MYELOID LEUKAEMIA
     Route: 042
     Dates: start: 20190913, end: 20190914
  6. TAKECAB [Concomitant]
     Active Substance: VONOPRAZAN FUMARATE
     Indication: PRODUCT USED FOR UNKNOWN INDICATION
     Route: 048
     Dates: start: 20190913, end: 20190920
  7. XYLOCAINE [Suspect]
     Active Substance: LIDOCAINE HYDROCHLORIDE
     Indication: INFUSION SITE EXTRAVASATION
     Route: 061
     Dates: start: 20190915
  8. SAVENE [Suspect]
     Active Substance: DEXRAZOXANE
     Indication: INFUSION SITE EXTRAVASATION
     Route: 041
     Dates: start: 20190915, end: 20190916
  9. LACTEC [Concomitant]
     Active Substance: CALCIUM CHLORIDE ANHYDROUS\POTASSIUM CHLORIDE\SODIUM CHLORIDE\SODIUM LACTATE
     Indication: MEDICATION DILUTION
     Route: 041
     Dates: start: 20190915, end: 20190917
  10. EMEND [Concomitant]
     Active Substance: APREPITANT
     Indication: PROPHYLAXIS OF NAUSEA AND VOMITING
     Route: 048
     Dates: start: 20190913, end: 20190913
  11. PROPACIL [Concomitant]
     Indication: PRODUCT USED FOR UNKNOWN INDICATION
     Route: 048
     Dates: start: 20190913, end: 20190920
  12. EMEND [Concomitant]
     Active Substance: APREPITANT
     Route: 048
     Dates: start: 20190914, end: 20190915
  13. CYLOCIDE [Concomitant]
     Active Substance: CYTARABINE
     Indication: ACUTE MYELOID LEUKAEMIA
     Route: 042
     Dates: start: 20190913, end: 20190919
  14. KYTRIL [Concomitant]
     Active Substance: GRANISETRON HYDROCHLORIDE
     Indication: PROPHYLAXIS OF NAUSEA AND VOMITING
     Route: 048
     Dates: start: 20190913, end: 20190920
  15. PLANOVAR [Concomitant]
     Active Substance: ETHINYL ESTRADIOL\NORGESTREL
     Indication: MENSTRUAL CYCLE MANAGEMENT
     Route: 048
     Dates: start: 20190919, end: 20190920
  16. RINDERON VG [Suspect]
     Active Substance: BETAMETHASONE VALERATE\GENTAMICIN SULFATE
     Indication: INFUSION SITE EXTRAVASATION
     Route: 062
     Dates: start: 20190915, end: 20190917
  17. DEXART [Concomitant]
     Active Substance: DEXAMETHASONE SODIUM PHOSPHATE
     Indication: PROPHYLAXIS OF NAUSEA AND VOMITING
     Dates: start: 20190913, end: 20190920
  18. PLATELETS [Concomitant]
     Active Substance: HUMAN PLATELET, ALLOGENIC
     Indication: PRODUCT USED FOR UNKNOWN INDICATION
     Route: 041
     Dates: start: 20190912, end: 20190921

REACTIONS (2)
  - Sepsis [Fatal]
  - Bone marrow failure [Fatal]

NARRATIVE: CASE EVENT DATE: 20190910
